FAERS Safety Report 12864774 (Version 1)
Quarter: 2016Q4

REPORT INFORMATION
  Report Type: Spontaneous
  Country: US (occurrence: US)
  Receive Date: 20161019
  Receipt Date: 20161019
  Transmission Date: 20170207
  Serious: Yes (Other)
  Sender: FDA-Public Use
  Company Number: None

PATIENT
  Age: 22 Year
  Sex: Female
  Weight: 57.6 kg

DRUGS (2)
  1. BENZONATATE 100 MG [Suspect]
     Active Substance: BENZONATATE
     Indication: COUGH
     Dosage: ?          QUANTITY:2 CAPSULE(S);?
     Route: 048
     Dates: start: 20161016, end: 20161019
  2. BENZONATATE 100 MG [Suspect]
     Active Substance: BENZONATATE
     Indication: RESPIRATORY TRACT INFECTION VIRAL
     Dosage: ?          QUANTITY:2 CAPSULE(S);?
     Route: 048
     Dates: start: 20161016, end: 20161019

REACTIONS (2)
  - Rash pruritic [None]
  - Nasal congestion [None]

NARRATIVE: CASE EVENT DATE: 20161019
